FAERS Safety Report 7451105-2 (Version None)
Quarter: 2011Q2

REPORT INFORMATION
  Report Type: 
  Country: None (occurrence: None)
  Receive Date: 20110502
  Receipt Date: 20110418
  Transmission Date: 20111010
  Serious: Yes (Hospitalization)
  Sender: FDA-Public Use
  Company Number: US-CELGENEUS-163-21880-11042482

PATIENT
  Sex: Male
  Weight: 92.5 kg

DRUGS (2)
  1. REVLIMID [Suspect]
     Dosage: 5 MILLIGRAM
     Route: 048
     Dates: start: 20100913, end: 20101129
  2. REVLIMID [Suspect]
     Dosage: 5 MILLIGRAM
     Route: 048
     Dates: start: 20110113

REACTIONS (5)
  - SINUSITIS [None]
  - RASH PRURITIC [None]
  - PARAESTHESIA [None]
  - MUSCLE SPASMS [None]
  - NEPHROPATHY [None]
